FAERS Safety Report 24804700 (Version 6)
Quarter: 2025Q2

REPORT INFORMATION
  Report Type: Report from Study
  Country: KR (occurrence: KR)
  Receive Date: 20250103
  Receipt Date: 20250603
  Transmission Date: 20250717
  Serious: Yes (Hospitalization)
  Sender: MYLAN
  Company Number: KR-MYLANLABS-2024M1117872

PATIENT
  Age: 62 Year
  Sex: Male
  Weight: 74 kg

DRUGS (6)
  1. PRETOMANID [Suspect]
     Active Substance: PRETOMANID
     Indication: Tuberculosis
     Dosage: 200 MILLIGRAM, QD
     Dates: start: 20241111
  2. BEDAQUILINE [Suspect]
     Active Substance: BEDAQUILINE
     Indication: Tuberculosis
     Dosage: 400 MILLIGRAM, QD
     Dates: start: 20241111, end: 20241125
  3. BEDAQUILINE [Suspect]
     Active Substance: BEDAQUILINE
     Dosage: 200 MILLIGRAM, Q3W (3 TIMES A WEEK)
     Dates: start: 20241126
  4. LINEZOLID [Suspect]
     Active Substance: LINEZOLID
     Indication: Tuberculosis
     Dosage: 600 MILLIGRAM, QD
     Dates: start: 20241111
  5. Sinil pyridoxine [Concomitant]
     Indication: Prophylaxis
     Dosage: 1 DOSAGE FORM, QD
     Dates: start: 20241111, end: 20250428
  6. Moroxacin [Concomitant]
     Indication: Tuberculosis
     Dosage: 1 DOSAGE FORM, QD
     Dates: start: 20241111, end: 20250428

REACTIONS (3)
  - Nausea [Recovered/Resolved]
  - Loss of personal independence in daily activities [Recovered/Resolved]
  - Pruritus [Recovered/Resolved]

NARRATIVE: CASE EVENT DATE: 20241209
